FAERS Safety Report 12186133 (Version 1)
Quarter: 2016Q1

REPORT INFORMATION
  Report Type: Spontaneous
  Country: US (occurrence: US)
  Receive Date: 20160317
  Receipt Date: 20160317
  Transmission Date: 20160526
  Serious: Yes (Life-Threatening, Other)
  Sender: FDA-Public Use
  Company Number: US-HOSPIRA-3213954

PATIENT
  Age: 21 Year
  Sex: Female

DRUGS (1)
  1. EPINEPHRINE. [Suspect]
     Active Substance: EPINEPHRINE
     Indication: ANGIOEDEMA
     Dosage: 1:1000
     Route: 042

REACTIONS (5)
  - Tachypnoea [Recovered/Resolved]
  - Hypotension [Recovered/Resolved]
  - Incorrect route of drug administration [Recovered/Resolved]
  - Stress cardiomyopathy [Recovered/Resolved]
  - Tachycardia [Recovered/Resolved]
